FAERS Safety Report 17367955 (Version 4)
Quarter: 2021Q1

REPORT INFORMATION
  Report Type: Spontaneous
  Country: US (occurrence: US)
  Receive Date: 20200204
  Receipt Date: 20210304
  Transmission Date: 20210419
  Serious: Yes (Hospitalization, Other)
  Sender: FDA-Public Use
  Company Number: US-GILEAD-2020-0449364

PATIENT
  Age: 56 Year
  Sex: Male
  Weight: 104.3 kg

DRUGS (53)
  1. SERTRALINE [Concomitant]
     Active Substance: SERTRALINE HYDROCHLORIDE
  2. CEFTAZIDIME. [Concomitant]
     Active Substance: CEFTAZIDIME
  3. FAMOTIDINE. [Concomitant]
     Active Substance: FAMOTIDINE
  4. GABAPENTIN. [Concomitant]
     Active Substance: GABAPENTIN
  5. ELIQUIS [Concomitant]
     Active Substance: APIXABAN
  6. LORATIDINE?PSEUDOEPHEDRINE [Concomitant]
  7. ENSURE CLEAR [Concomitant]
  8. AMLODIPINE [Concomitant]
     Active Substance: AMLODIPINE BESYLATE
  9. TRAMADOL. [Concomitant]
     Active Substance: TRAMADOL
  10. PNEUMOVAX 23 [Concomitant]
     Active Substance: PNEUMOCOCCAL VACCINE, POLYVALENT 23
  11. METRONIDAZOLE. [Concomitant]
     Active Substance: METRONIDAZOLE
  12. POTASSIUM CHLORIDE. [Concomitant]
     Active Substance: POTASSIUM CHLORIDE
  13. MAGNESIUM SULFATE. [Concomitant]
     Active Substance: MAGNESIUM SULFATE
  14. INSULIN LISPRO [Concomitant]
     Active Substance: INSULIN LISPRO
  15. TRUVADA [Suspect]
     Active Substance: EMTRICITABINE\TENOFOVIR DISOPROXIL FUMARATE
     Indication: HIV INFECTION
     Dosage: UNK
     Route: 048
     Dates: start: 2006, end: 201711
  16. ACETAMINOPHEN. [Concomitant]
     Active Substance: ACETAMINOPHEN
  17. PENICILLIN [Concomitant]
     Active Substance: PENICILLIN
  18. NAPROXEN. [Concomitant]
     Active Substance: NAPROXEN
  19. PANTOPRAZOLE [Concomitant]
     Active Substance: PANTOPRAZOLE
  20. SODIUM BICARBONATE. [Concomitant]
     Active Substance: SODIUM BICARBONATE
  21. HEPARIN [Concomitant]
     Active Substance: HEPARIN SODIUM
  22. ISENTRESS [Concomitant]
     Active Substance: RALTEGRAVIR POTASSIUM
     Indication: HIV INFECTION
  23. NORVIR [Concomitant]
     Active Substance: RITONAVIR
     Indication: HIV INFECTION
  24. LEVOPHED [Concomitant]
     Active Substance: NOREPINEPHRINE BITARTRATE
  25. SODIUM CHLORIDE. [Concomitant]
     Active Substance: SODIUM CHLORIDE
  26. FLUCONAZOLE. [Concomitant]
     Active Substance: FLUCONAZOLE
  27. MICONAZOLE NITRATE. [Concomitant]
     Active Substance: MICONAZOLE NITRATE
  28. LOPRESSOR [Concomitant]
     Active Substance: METOPROLOL TARTRATE
  29. AMOXICILLIN. [Concomitant]
     Active Substance: AMOXICILLIN
  30. ASPIRIN. [Concomitant]
     Active Substance: ASPIRIN
  31. CELEBREX [Concomitant]
     Active Substance: CELECOXIB
  32. VITAMIN C [Concomitant]
     Active Substance: ASCORBIC ACID
  33. CEFAZOLIN [Concomitant]
     Active Substance: CEFAZOLIN
  34. FENTANYL. [Concomitant]
     Active Substance: FENTANYL
  35. COLACE [Concomitant]
     Active Substance: DOCUSATE SODIUM
  36. VIREAD [Suspect]
     Active Substance: TENOFOVIR DISOPROXIL FUMARATE
     Indication: HIV INFECTION
     Dosage: UNK
     Route: 048
     Dates: start: 2001, end: 2006
  37. TRUVADA [Suspect]
     Active Substance: EMTRICITABINE\TENOFOVIR DISOPROXIL FUMARATE
     Dosage: UNK
     Route: 048
     Dates: start: 2006, end: 20170214
  38. GENVOYA [Concomitant]
     Active Substance: COBICISTAT\ELVITEGRAVIR\EMTRICITABINE\TENOFOVIR ALAFENAMIDE FUMARATE
  39. TRAZODONE [Concomitant]
     Active Substance: TRAZODONE HYDROCHLORIDE
  40. LOVENOX [Concomitant]
     Active Substance: ENOXAPARIN SODIUM
  41. REYATAZ [Concomitant]
     Active Substance: ATAZANAVIR SULFATE
     Indication: HIV INFECTION
  42. DAILY?VITE [Concomitant]
  43. PEDS IMIPENEMCILASTATIN (PRIMAXIN) IVPB [Concomitant]
  44. SILVER SULFADIAZINE. [Concomitant]
     Active Substance: SILVER SULFADIAZINE
  45. TRUVADA [Suspect]
     Active Substance: EMTRICITABINE\TENOFOVIR DISOPROXIL FUMARATE
     Dosage: UNK
     Route: 048
     Dates: start: 2006, end: 20170114
  46. HARVONI [Concomitant]
     Active Substance: LEDIPASVIR\SOFOSBUVIR
  47. EMTRIVA [Concomitant]
     Active Substance: EMTRICITABINE
     Indication: HIV INFECTION
  48. LEVOFLOXACIN. [Concomitant]
     Active Substance: LEVOFLOXACIN
  49. PLAVIX [Concomitant]
     Active Substance: CLOPIDOGREL BISULFATE
  50. ARTIFICIAL TEARS OPHTHALMOLOGIST SOLUTION [Concomitant]
  51. LOPERAMIDE [Concomitant]
     Active Substance: LOPERAMIDE
  52. DARBEPOETIN ALFA [Concomitant]
     Active Substance: DARBEPOETIN ALFA
  53. SEVELAMER CARBONATE. [Concomitant]
     Active Substance: SEVELAMER CARBONATE

REACTIONS (16)
  - Gangrene [Not Recovered/Not Resolved]
  - Tibia fracture [Unknown]
  - Fibula fracture [Unknown]
  - Acute kidney injury [Recovered/Resolved]
  - Pain [Unknown]
  - Depression [Not Recovered/Not Resolved]
  - Bone density decreased [Unknown]
  - Anhedonia [Unknown]
  - Lumbar vertebral fracture [Not Recovered/Not Resolved]
  - Anxiety [Unknown]
  - Multiple fractures [Unknown]
  - Emotional distress [Unknown]
  - Femur fracture [Unknown]
  - Tooth loss [Not Recovered/Not Resolved]
  - Economic problem [Unknown]
  - Ankle fracture [Not Recovered/Not Resolved]

NARRATIVE: CASE EVENT DATE: 20110209
